FAERS Safety Report 4711826-9 (Version None)
Quarter: 2005Q3

REPORT INFORMATION
  Report Type: 
  Country: None (occurrence: None)
  Receive Date: 20050708
  Receipt Date: 20050323
  Transmission Date: 20060218
  Serious: Yes (Other)
  Sender: FDA-Public Use
  Company Number: 2005048556

PATIENT
  Sex: Female
  Weight: 61.2356 kg

DRUGS (5)
  1. NICOTROL [Suspect]
     Indication: SMOKING CESSATION THERAPY
     Dosage: 2 OR 3 CARTRIDGES A DAY, INHALATION
     Route: 055
     Dates: start: 20040101
  2. COMBIVENT [Concomitant]
  3. GLATIRAMER ACETATE (GLATIRAMER ACETATE) [Concomitant]
  4. VENLAFAXINE HCL [Concomitant]
  5. DILTIAZEM [Concomitant]

REACTIONS (2)
  - DEPENDENCE [None]
  - MEDICATION ERROR [None]
